FAERS Safety Report 5944330-0 (Version None)
Quarter: 2008Q4

REPORT INFORMATION
  Report Type: 
  Country: None (occurrence: None)
  Receive Date: 20081105
  Receipt Date: 20081031
  Transmission Date: 20090506
  Serious: Yes (Disabling)
  Sender: FDA-Public Use
  Company Number: APP200801078

PATIENT
  Sex: Male

DRUGS (3)
  1. BUPIVACAINE [Suspect]
     Indication: MUSCULOSKELETAL PAIN
     Dosage: CONTINUOUS VIA PAIN PUMP, INTRA-ARTICULAR
     Route: 014
     Dates: start: 20061012
  2. BUPIVACAINE HYDROCHLORIDE AND EPINEPHRINE [Suspect]
     Indication: MUSCULOSKELETAL PAIN
     Dosage: CONTINUOUS VIA PAIN PUMP, INTRA-ARTICU;AR
     Route: 014
     Dates: start: 20061012
  3. I-FLOW PAIN PUMP [Suspect]
     Indication: MUSCULOSKELETAL PAIN
     Dates: start: 20061012

REACTIONS (2)
  - CHONDROLYSIS [None]
  - MUSCULOSKELETAL PAIN [None]
